FAERS Safety Report 25057298 (Version 2)
Quarter: 2025Q2

REPORT INFORMATION
  Report Type: Spontaneous
  Country: JP (occurrence: JP)
  Receive Date: 20250310
  Receipt Date: 20250410
  Transmission Date: 20250716
  Serious: Yes (Other)
  Sender: ABBVIE
  Company Number: JP-ABBVIE-6045821

PATIENT
  Age: 20 Year
  Sex: Male

DRUGS (4)
  1. RINVOQ [Suspect]
     Active Substance: UPADACITINIB
     Indication: Crohn^s disease
     Route: 048
     Dates: start: 20230920, end: 20231205
  2. RINVOQ [Suspect]
     Active Substance: UPADACITINIB
     Indication: Crohn^s disease
     Route: 048
     Dates: start: 20231206
  3. AMINO ACIDS\CARBOHYDRATES\MINERALS\SOYBEAN OIL\VITAMINS [Concomitant]
     Active Substance: AMINO ACIDS\CARBOHYDRATES\MINERALS\SOYBEAN OIL\VITAMINS
     Indication: Crohn^s disease
     Route: 048
  4. MESALAMINE [Concomitant]
     Active Substance: MESALAMINE
     Indication: Crohn^s disease
     Route: 048

REACTIONS (1)
  - Intestinal stenosis [Not Recovered/Not Resolved]

NARRATIVE: CASE EVENT DATE: 20241127
